FAERS Safety Report 6604452-8 (Version None)
Quarter: 2010Q1

REPORT INFORMATION
  Report Type: 
  Country: None (occurrence: None)
  Receive Date: 20100226
  Receipt Date: 20091015
  Transmission Date: 20100710
  Serious: No
  Sender: FDA-Public Use
  Company Number: A0811988A

PATIENT
  Age: 60 Year
  Sex: Female

DRUGS (6)
  1. LAMOTRIGINE [Suspect]
     Indication: BIPOLAR DISORDER
     Dosage: 200MG PER DAY
     Route: 048
     Dates: start: 20080601, end: 20090401
  2. LAMOTRIGINE [Suspect]
     Dosage: 200MG PER DAY
     Route: 048
     Dates: start: 20090101
  3. CYMBALTA [Concomitant]
  4. LEVOTHYROXINE [Concomitant]
  5. HYDROCODONE [Concomitant]
  6. LOMOTIL [Concomitant]

REACTIONS (1)
  - DRUG INEFFECTIVE [None]
